FAERS Safety Report 9848119 (Version 1)
Quarter: 2014Q1

REPORT INFORMATION
  Report Type: Spontaneous
  Country: US (occurrence: None)
  Receive Date: 20140117
  Receipt Date: 20140117
  Transmission Date: 20141002
  Serious: Yes (Death)
  Sender: FDA-Public Use
  Company Number: B0959141A

PATIENT
  Age: 25 Year
  Sex: Female

DRUGS (3)
  1. PAROXETINE HYDROCHLORIDE [Suspect]
     Route: 048
  2. DOXEPIN [Suspect]
     Route: 048
  3. TRAMADOL HYDROCHLORIDE [Suspect]
     Route: 048

REACTIONS (2)
  - Intentional drug misuse [None]
  - Drug abuse [None]
